FAERS Safety Report 10142440 (Version 3)
Quarter: 2014Q2

REPORT INFORMATION
  Report Type: Report from Study
  Country: US (occurrence: US)
  Receive Date: 20140430
  Receipt Date: 20140623
  Transmission Date: 20141212
  Serious: Yes (Other)
  Sender: FDA-Public Use
  Company Number: US-BIOGENIDEC-2014BI039228

PATIENT
  Sex: Male
  Weight: 81 kg

DRUGS (12)
  1. AVONEX [Suspect]
     Indication: MULTIPLE SCLEROSIS
     Route: 030
     Dates: start: 20090919, end: 20100718
  2. AVONEX [Suspect]
     Indication: MULTIPLE SCLEROSIS
     Route: 030
     Dates: start: 20100827
  3. AVONEX [Suspect]
     Indication: MULTIPLE SCLEROSIS
     Route: 030
  4. PROVIGIL [Concomitant]
     Route: 048
  5. FISH OIL [Concomitant]
     Route: 048
  6. B-12 [Concomitant]
  7. VITAMIN D3 [Concomitant]
  8. GLUCOSAMINE-CHONDROITIN [Concomitant]
  9. LEVOTHYROXINE SODIUM [Concomitant]
  10. CITALOPRAM HYDROBROMIDE [Concomitant]
     Route: 048
  11. ACETYL L-CARNITINE [Concomitant]
  12. COPAXONE [Concomitant]

REACTIONS (3)
  - Drug intolerance [Unknown]
  - Influenza like illness [Unknown]
  - Febrile convulsion [Recovered/Resolved]
